FAERS Safety Report 22084643 (Version 1)
Quarter: 2023Q1

REPORT INFORMATION
  Report Type: Report from Study
  Country: GB (occurrence: GB)
  Receive Date: 20230310
  Receipt Date: 20230310
  Transmission Date: 20230417
  Serious: Yes (Other)
  Sender: FDA-Public Use
  Company Number: GB-002147023-NVSC2023GB047908

PATIENT
  Sex: Male

DRUGS (1)
  1. MAYZENT [Suspect]
     Active Substance: SIPONIMOD
     Indication: Multiple sclerosis
     Dosage: 2 MG, QD
     Route: 048
     Dates: start: 20220301

REACTIONS (13)
  - Blood pressure systolic decreased [Unknown]
  - Unresponsive to stimuli [Unknown]
  - Fall [Recovered/Resolved]
  - COVID-19 [Recovering/Resolving]
  - Headache [Recovered/Resolved]
  - Body temperature increased [Recovered/Resolved]
  - Nausea [Recovered/Resolved]
  - Cough [Not Recovered/Not Resolved]
  - Rhinorrhoea [Unknown]
  - Confusional state [Recovered/Resolved]
  - Herpes zoster [Recovering/Resolving]
  - Blister [Unknown]
  - Scab [Unknown]

NARRATIVE: CASE EVENT DATE: 20230106
